FAERS Safety Report 23553256 (Version 1)
Quarter: 2024Q1

REPORT INFORMATION
  Report Type: Spontaneous
  Country: US (occurrence: US)
  Receive Date: 20240222
  Receipt Date: 20240222
  Transmission Date: 20240410
  Serious: Yes (Life-Threatening, Hospitalization)
  Sender: FDA-Public Use
  Company Number: US-MYLANLABS-2024M1015937

PATIENT
  Age: 62 Year
  Sex: Female

DRUGS (17)
  1. ROPIVACAINE [Suspect]
     Active Substance: ROPIVACAINE
     Indication: Nerve block
     Dosage: UNK
     Route: 065
  2. FENTANYL [Suspect]
     Active Substance: FENTANYL\FENTANYL CITRATE
     Indication: General anaesthesia
     Dosage: 100 MICROGRAM
     Route: 065
  3. FENTANYL [Suspect]
     Active Substance: FENTANYL\FENTANYL CITRATE
     Dosage: 50 MICROGRAM
     Route: 065
  4. FENTANYL [Suspect]
     Active Substance: FENTANYL\FENTANYL CITRATE
     Dosage: 100 MICROGRAM
     Route: 065
  5. LIDOCAINE [Suspect]
     Active Substance: LIDOCAINE
     Indication: General anaesthesia
     Dosage: 100 MILLIGRAM
     Route: 065
  6. LIDOCAINE [Suspect]
     Active Substance: LIDOCAINE
     Dosage: 80 MILLIGRAM
     Route: 065
  7. LIDOCAINE [Suspect]
     Active Substance: LIDOCAINE
     Dosage: 60 MILLIGRAM
     Route: 065
  8. ROCURONIUM [Suspect]
     Active Substance: ROCURONIUM BROMIDE
     Indication: General anaesthesia
     Dosage: 50 MILLIGRAM
     Route: 065
  9. ROCURONIUM [Suspect]
     Active Substance: ROCURONIUM BROMIDE
     Dosage: 80 MILLIGRAM
     Route: 065
  10. MIDAZOLAM [Suspect]
     Active Substance: MIDAZOLAM
     Indication: General anaesthesia
     Dosage: 4 MILLIGRAM
     Route: 065
  11. MIDAZOLAM [Suspect]
     Active Substance: MIDAZOLAM
     Dosage: 2 MILLIGRAM
     Route: 065
  12. MIDAZOLAM [Suspect]
     Active Substance: MIDAZOLAM
     Dosage: 2 MILLIGRAM
     Route: 065
  13. PROPOFOL [Suspect]
     Active Substance: PROPOFOL
     Indication: General anaesthesia
     Dosage: 180 MILLIGRAM
     Route: 065
  14. PROPOFOL [Suspect]
     Active Substance: PROPOFOL
     Dosage: 130 MILLIGRAM
     Route: 065
  15. PROPOFOL [Suspect]
     Active Substance: PROPOFOL
     Dosage: 200 MILLIGRAM
     Route: 065
  16. DESFLURANE [Suspect]
     Active Substance: DESFLURANE
     Indication: General anaesthesia
     Dosage: UNK
     Route: 065
  17. SUGAMMADEX [Concomitant]
     Active Substance: SUGAMMADEX
     Indication: Neuromuscular blockade reversal
     Dosage: 200 MILLIGRAM
     Route: 065

REACTIONS (2)
  - Vocal cord dysfunction [Unknown]
  - Respiratory distress [Unknown]
